FAERS Safety Report 13191790 (Version 1)
Quarter: 2017Q1

REPORT INFORMATION
  Report Type: Spontaneous
  Country: US (occurrence: US)
  Receive Date: 20170206
  Receipt Date: 20170206
  Transmission Date: 20170428
  Serious: Yes (Disabling, Other)
  Sender: FDA-Public Use
  Company Number: None

PATIENT
  Age: 25 Year
  Sex: Female
  Weight: 63.9 kg

DRUGS (1)
  1. TRETONOIN 0.1 % [Suspect]
     Active Substance: TRETINOIN
     Indication: ACNE
     Dosage: ?          QUANTITY:1 OUNCE(S);?
     Route: 061
     Dates: start: 20160727, end: 20160912

REACTIONS (9)
  - Haemorrhage [None]
  - Breast pain [None]
  - Constipation [None]
  - Pain [None]
  - Fatigue [None]
  - Pain in extremity [None]
  - Thyroid function test abnormal [None]
  - Impaired work ability [None]
  - Blood cholesterol increased [None]

NARRATIVE: CASE EVENT DATE: 20160902
